FAERS Safety Report 9650954 (Version 1)
Quarter: 2013Q4

REPORT INFORMATION
  Report Type: Spontaneous
  Country: US (occurrence: US)
  Receive Date: 20131029
  Receipt Date: 20131029
  Transmission Date: 20140711
  Serious: No
  Sender: FDA-Public Use
  Company Number: US-PFIZER INC-2013302803

PATIENT
  Age: 60 Year
  Sex: Female

DRUGS (7)
  1. CHANTIX [Suspect]
     Dosage: UNK
  2. ANASTROZOLE [Suspect]
     Dosage: UNK
  3. INTERFERON [Suspect]
     Dosage: UNK
  4. ACETYLSALICYLIC ACID [Suspect]
     Dosage: UNK
  5. DARVOCET [Suspect]
     Dosage: UNK
  6. SYMBICORT [Suspect]
     Dosage: UNK
  7. ADVAIR [Suspect]
     Dosage: UNK

REACTIONS (1)
  - Drug hypersensitivity [Unknown]
